FAERS Safety Report 4427353-2 (Version None)
Quarter: 2004Q3

REPORT INFORMATION
  Report Type: 
  Country: None (occurrence: None)
  Receive Date: 20040817
  Receipt Date: 20040805
  Transmission Date: 20050211
  Serious: Yes (Hospitalization, Other)
  Sender: FDA-Public Use
  Company Number: CH-BRISTOL-MYERS SQUIBB COMPANY-12662854

PATIENT
  Age: 66 Year
  Sex: Female

DRUGS (6)
  1. PRAVASTATIN SODIUM [Suspect]
     Indication: PROPHYLAXIS
     Route: 048
     Dates: end: 20040719
  2. GLUCOPHAGE [Suspect]
     Indication: DIABETES MELLITUS
     Route: 048
     Dates: end: 20040719
  3. APROVEL TABS 150 MG [Concomitant]
     Indication: ESSENTIAL HYPERTENSION
     Route: 048
  4. NEXIUM [Concomitant]
     Route: 048
     Dates: end: 20040712
  5. URISPAS [Concomitant]
     Indication: HYDRONEPHROSIS
     Route: 048
     Dates: start: 20000903, end: 20040712
  6. PASPERTIN [Concomitant]
     Indication: NAUSEA
     Route: 048
     Dates: end: 20040712

REACTIONS (1)
  - HEPATOCELLULAR DAMAGE [None]
